FAERS Safety Report 9519022 (Version 1)
Quarter: 2013Q3

REPORT INFORMATION
  Report Type: Spontaneous
  Country: US (occurrence: None)
  Receive Date: 20130911
  Receipt Date: 20130911
  Transmission Date: 20140515
  Serious: Yes (Death)
  Sender: FDA-Public Use
  Company Number: None

PATIENT
  Age: 46 Year
  Sex: Female
  Weight: 79.5 kg

DRUGS (2)
  1. DOMPERIDONE [Suspect]
     Indication: GASTROOESOPHAGEAL REFLUX DISEASE
     Dosage: 10 MG BID PO
     Route: 048
     Dates: start: 20100208, end: 20100211
  2. KAPIDEX [Suspect]

REACTIONS (10)
  - Chest pain [None]
  - Palpitations [None]
  - Pain in extremity [None]
  - Sudden cardiac death [None]
  - Arrhythmia [None]
  - Coronary artery disease [None]
  - Torsade de pointes [None]
  - Muscular weakness [None]
  - Arteriosclerosis coronary artery [None]
  - Product quality issue [None]
